FAERS Safety Report 11189673 (Version 3)
Quarter: 2015Q4

REPORT INFORMATION
  Report Type: Spontaneous
  Country: US (occurrence: US)
  Receive Date: 20150615
  Receipt Date: 20151023
  Transmission Date: 20160304
  Serious: Yes (Hospitalization, Other)
  Sender: FDA-Public Use
  Company Number: US-DSJP-DSU-2015-112905

PATIENT

DRUGS (12)
  1. VERAMYST [Concomitant]
     Active Substance: FLUTICASONE FUROATE
     Dosage: 27.5 MCG/ACTUATION
     Dates: start: 20140226
  2. FOSAMAX [Concomitant]
     Active Substance: ALENDRONATE SODIUM
     Dosage: 70 MG, ONCE EVERY 1 WK
     Dates: start: 20140216
  3. PYRIDIUM [Concomitant]
     Active Substance: PHENAZOPYRIDINE
     Dosage: 200 MG, TID
     Dates: start: 20140202, end: 20140204
  4. FLOMAX [Concomitant]
     Active Substance: TAMSULOSIN HYDROCHLORIDE
     Dosage: 0.4 MG, QD
     Dates: start: 20140520
  5. BYSTOLIC [Concomitant]
     Active Substance: NEBIVOLOL HYDROCHLORIDE
     Dosage: 5 MG, QD
     Dates: start: 20140407
  6. MOBIC [Concomitant]
     Active Substance: MELOXICAM
     Dosage: 7.5 MG, QD
     Dates: start: 20140407
  7. CALTREX [Concomitant]
     Dosage: 600 MG, BID
     Dates: start: 20140212
  8. BENICAR HCT [Suspect]
     Active Substance: HYDROCHLOROTHIAZIDE\OLMESARTAN MEDOXOMIL
     Indication: HYPERTENSION
     Dosage: 20 MG, UNK
     Dates: start: 2003
  9. PRILOSEC [Concomitant]
     Active Substance: OMEPRAZOLE MAGNESIUM
     Dosage: 20 MG, QD
     Dates: start: 20140407
  10. SINGULAIR [Concomitant]
     Active Substance: MONTELUKAST SODIUM
     Dosage: 10 MG, QD
     Dates: start: 20140520
  11. BENICAR [Suspect]
     Active Substance: OLMESARTAN MEDOXOMIL
     Indication: HYPERTENSION
     Dosage: 20 MG, UNK
  12. CIPROFLOXACIN. [Concomitant]
     Active Substance: CIPROFLOXACIN
     Dosage: 500 MG, BID
     Dates: start: 20140202, end: 20140205

REACTIONS (11)
  - Hyponatraemia [Unknown]
  - Colitis [Not Recovered/Not Resolved]
  - Malabsorption [Unknown]
  - Lactose intolerance [Unknown]
  - Urinary tract infection [Unknown]
  - Urinary incontinence [Unknown]
  - Peptic ulcer [Unknown]
  - Chest pain [Unknown]
  - Urinary tract pain [Not Recovered/Not Resolved]
  - Large intestinal obstruction [Unknown]
  - Gastroenteritis viral [Recovering/Resolving]

NARRATIVE: CASE EVENT DATE: 2013
